FAERS Safety Report 6643005-2 (Version None)
Quarter: 2010Q1

REPORT INFORMATION
  Report Type: 
  Country: None (occurrence: None)
  Receive Date: 20100319
  Receipt Date: 20100309
  Transmission Date: 20100710
  Serious: Yes (Death, Hospitalization)
  Sender: FDA-Public Use
  Company Number: B0252047A

PATIENT
  Sex: Female
  Weight: 84.5 kg

DRUGS (15)
  1. AVANDIA [Suspect]
     Dosage: 8MG PER DAY
     Route: 048
     Dates: start: 20001206, end: 20010324
  2. ATENOLOL [Concomitant]
     Dosage: 25MG PER DAY
     Dates: start: 19940101
  3. NIFEDIPINE [Concomitant]
     Dates: start: 19950101
  4. ISOSORBIDE MONONITRATE [Concomitant]
     Dates: start: 19940101
  5. PREDNISONE [Concomitant]
     Dosage: 20MG PER DAY
  6. ENALAPRIL MALEATE [Concomitant]
     Dosage: 10MG PER DAY
  7. PANTOPRAZOLE [Concomitant]
     Dosage: 40MG PER DAY
  8. SPIRONOLACTONE [Concomitant]
     Dosage: 50MG PER DAY
  9. AMOXICILLIN AND CLAVULANATE POTASSIUM [Concomitant]
     Dosage: 1875MG PER DAY
     Dates: end: 20010117
  10. COLCHICINE [Concomitant]
     Dosage: 1.5MG PER DAY
  11. ALLOPURINOL [Concomitant]
     Dosage: 200MG PER DAY
  12. GEMFIBROZIL [Concomitant]
     Dosage: 600MG PER DAY
  13. BUMETANIDE [Concomitant]
     Dosage: 2.5MG PER DAY
  14. GLIBENCLAMIDE [Concomitant]
     Dosage: 10MG PER DAY
  15. PARACETAMOL [Concomitant]

REACTIONS (15)
  - ASCITES [None]
  - CARDIAC FAILURE [None]
  - COUGH [None]
  - DYSPNOEA [None]
  - ELECTROLYTE IMBALANCE [None]
  - HEPATIC CONGESTION [None]
  - HEPATIC NECROSIS [None]
  - JAUNDICE [None]
  - OEDEMA [None]
  - PAIN IN EXTREMITY [None]
  - PNEUMONIA [None]
  - PRODUCTIVE COUGH [None]
  - PRURITUS [None]
  - RENAL FAILURE [None]
  - WEIGHT INCREASED [None]
